FAERS Safety Report 11411255 (Version 1)
Quarter: 2015Q3

REPORT INFORMATION
  Report Type: Spontaneous
  Country: US (occurrence: US)
  Receive Date: 20150821
  Receipt Date: 20150821
  Transmission Date: 20151125
  Serious: No
  Sender: FDA-Public Use
  Company Number: US-ELI_LILLY_AND_COMPANY-US201005006199

PATIENT
  Age: 48 Year
  Sex: Male

DRUGS (6)
  1. AMLODIPINE [Concomitant]
     Active Substance: AMLODIPINE BESYLATE
  2. GLUCOTROL [Concomitant]
     Active Substance: GLIPIZIDE
     Dosage: 5 MG, DAILY (1/D)
  3. LOTRIAL [Concomitant]
     Active Substance: ENALAPRIL MALEATE
  4. HUMULIN 70/30 [Suspect]
     Active Substance: INSULIN HUMAN
     Indication: DIABETES MELLITUS
     Dosage: 45 U, 2/D
     Dates: start: 2009
  5. METFORMIN [Concomitant]
     Active Substance: METFORMIN HYDROCHLORIDE
     Dosage: 1000 MG, 2/D
  6. BENAZEPRIL [Concomitant]
     Active Substance: BENAZEPRIL HYDROCHLORIDE
     Dosage: 10 MG, UNK

REACTIONS (10)
  - Musculoskeletal pain [Unknown]
  - Mydriasis [Unknown]
  - Neck pain [Unknown]
  - Photophobia [Unknown]
  - Arthritis [Unknown]
  - Ocular hyperaemia [Unknown]
  - Dry eye [Unknown]
  - Vision blurred [Unknown]
  - Eyelid pain [Unknown]
  - Muscle disorder [Unknown]

NARRATIVE: CASE EVENT DATE: 200910
